FAERS Safety Report 15830591 (Version 1)
Quarter: 2019Q1

REPORT INFORMATION
  Report Type: Spontaneous
  Country: ES (occurrence: ES)
  Receive Date: 20190115
  Receipt Date: 20190115
  Transmission Date: 20190417
  Serious: Yes (Other)
  Sender: FDA-Public Use
  Company Number: ES-ABBVIE-19K-144-2622270-00

PATIENT
  Age: 21 Year
  Sex: Male

DRUGS (3)
  1. HUMIRA [Suspect]
     Active Substance: ADALIMUMAB
     Route: 058
  2. HUMIRA [Suspect]
     Active Substance: ADALIMUMAB
     Indication: CROHN^S DISEASE
     Route: 058
     Dates: start: 20161114, end: 20180924
  3. HUMIRA [Suspect]
     Active Substance: ADALIMUMAB
     Route: 058

REACTIONS (2)
  - Psoriasis [Recovering/Resolving]
  - Palmoplantar pustulosis [Recovering/Resolving]

NARRATIVE: CASE EVENT DATE: 201806
